FAERS Safety Report 16840969 (Version 1)
Quarter: 2019Q3

REPORT INFORMATION
  Report Type: Spontaneous
  Country: US (occurrence: US)
  Receive Date: 20190923
  Receipt Date: 20190923
  Transmission Date: 20191005
  Serious: Yes (Hospitalization)
  Sender: FDA-Public Use
  Company Number: US-AMERICAN REGENT INC-2019002054

PATIENT
  Age: 37 Year
  Sex: Female

DRUGS (4)
  1. KETOROLAC TROMETHAMINE INJECTION, USP (0601-25) [Suspect]
     Active Substance: KETOROLAC TROMETHAMINE
     Indication: PELVIC CONGESTION
     Dosage: 60 MILLIGRAM
     Route: 042
  2. IBUPROFEN. [Suspect]
     Active Substance: IBUPROFEN
     Dosage: 600 MILLIGRAM, BID (ALONG WITH ACETAMINOPHEN)
     Route: 065
  3. ACETAMINOPHEN. [Concomitant]
     Active Substance: ACETAMINOPHEN
     Indication: PELVIC CONGESTION
     Dosage: UNK (WITH IBUPROFEN)
     Route: 065
  4. IBUPROFEN. [Suspect]
     Active Substance: IBUPROFEN
     Indication: PELVIC CONGESTION
     Dosage: 600 MILLIGRAM, (PRESCRIBED AS Q 6HR PRN; TAKEN AS TID)
     Route: 065

REACTIONS (3)
  - Acute kidney injury [Recovering/Resolving]
  - Renal ischaemia [Recovering/Resolving]
  - Renal infarct [Recovering/Resolving]
